FAERS Safety Report 17849584 (Version 1)
Quarter: 2020Q2

REPORT INFORMATION
  Report Type: Spontaneous
  Country: IT (occurrence: IT)
  Receive Date: 20200602
  Receipt Date: 20200602
  Transmission Date: 20200714
  Serious: Yes (Other)
  Sender: FDA-Public Use
  Company Number: IT-TEVA-2020-IT-1242220

PATIENT
  Age: 77 Year
  Sex: Male

DRUGS (4)
  1. LASIX [Concomitant]
     Active Substance: FUROSEMIDE
  2. OXALIPLATINO 5 MG / ML, CONCENTRATO PER SOLUZIONE PER INFUSIONE [Suspect]
     Active Substance: OXALIPLATIN
     Indication: GASTRIC CANCER
     Dosage: 200MG
     Route: 041
     Dates: start: 20200507
  3. ADENURIC 80 MG FILM-COATED TABLETS [Concomitant]
     Active Substance: FEBUXOSTAT
  4. TENORMIN 100 MG COMPRESSE [Concomitant]

REACTIONS (2)
  - Joint contracture [Recovering/Resolving]
  - Speech disorder [Recovering/Resolving]
